FAERS Safety Report 4684737-5 (Version None)
Quarter: 2005Q2

REPORT INFORMATION
  Report Type: 
  Country: None (occurrence: None)
  Receive Date: 20050603
  Receipt Date: 20050523
  Transmission Date: 20051028
  Serious: Yes (Hospitalization, Other)
  Sender: FDA-Public Use
  Company Number: 2005079195

PATIENT
  Sex: Male

DRUGS (4)
  1. ATORVASTATIN CALCIUM [Suspect]
     Indication: CAROTID ARTERY STENOSIS
     Dosage: 10 MG (10 MG, 1 IN 1 D),
  2. ATORVASTATIN CALCIUM [Suspect]
     Indication: HYPERCHOLESTEROLAEMIA
     Dosage: 10 MG (10 MG, 1 IN 1 D),
  3. DIGOXIN [Suspect]
     Indication: ILL-DEFINED DISORDER
     Dosage: (1 IN 1 D),
  4. FLUINDIONE (FLUINDIONE) [Concomitant]

REACTIONS (7)
  - ARTHRALGIA [None]
  - ATRIAL FIBRILLATION [None]
  - HYPOACUSIS [None]
  - MYALGIA [None]
  - PATELLA FRACTURE [None]
  - PRURITUS [None]
  - TENDON DISORDER [None]
